FAERS Safety Report 13269678 (Version 1)
Quarter: 2017Q1

REPORT INFORMATION
  Report Type: Spontaneous
  Country: GB (occurrence: GB)
  Receive Date: 20170224
  Receipt Date: 20170224
  Transmission Date: 20170428
  Serious: Yes (Other)
  Sender: FDA-Public Use
  Company Number: GB-009507513-1611GBR011405

PATIENT
  Age: 43 Year
  Sex: Female

DRUGS (2)
  1. ETONOGESTREL IMPLANT- UNKNOWN [Suspect]
     Active Substance: ETONOGESTREL
     Indication: PRODUCT USED FOR UNKNOWN INDICATION
     Dosage: 1 DF, UNKNOWN
     Route: 059
     Dates: start: 201206, end: 20170112
  2. NEXPLANON [Suspect]
     Active Substance: ETONOGESTREL
     Indication: CONTRACEPTION
     Dosage: 1 DF, UNK
     Route: 058
     Dates: start: 20161109

REACTIONS (14)
  - Incorrect drug administration duration [Unknown]
  - Discomfort [Unknown]
  - Hypoaesthesia [Not Recovered/Not Resolved]
  - Nerve injury [Unknown]
  - Haematoma [Unknown]
  - Device difficult to use [Not Recovered/Not Resolved]
  - Paraesthesia [Not Recovered/Not Resolved]
  - General anaesthesia [Recovered/Resolved]
  - Complication of device removal [Not Recovered/Not Resolved]
  - Complication associated with device [Recovered/Resolved]
  - Device deployment issue [Recovered/Resolved]
  - Pain [Unknown]
  - Device difficult to use [Recovered/Resolved]
  - Overdose [Unknown]

NARRATIVE: CASE EVENT DATE: 201206
